FAERS Safety Report 6006745-4 (Version None)
Quarter: 2008Q4

REPORT INFORMATION
  Report Type: 
  Country: None (occurrence: None)
  Receive Date: 20081215
  Receipt Date: 20081204
  Transmission Date: 20090506
  Serious: Yes (Hospitalization)
  Sender: FDA-Public Use
  Company Number: 2008SP024876

PATIENT
  Age: 74 Year
  Sex: Male

DRUGS (9)
  1. DIAFUSOR (GLYCERYL TRINITRATE) [Suspect]
     Dosage: CUT
     Route: 003
  2. DILRENE (DILTIAZEM HYDROCHLORIDE) [Suspect]
     Dates: end: 20021110
  3. TRAMADOL HCL [Suspect]
     Dates: end: 20021110
  4. ZOCOR [Suspect]
     Dates: end: 20021109
  5. ATENOLOL [Concomitant]
  6. KARDEGIC [Concomitant]
  7. TENSTATEN [Concomitant]
  8. CO APROVEL [Concomitant]
  9. .............. [Concomitant]

REACTIONS (3)
  - CONFUSIONAL STATE [None]
  - MALAISE [None]
  - SYNCOPE [None]
